FAERS Safety Report 23182105 (Version 1)
Quarter: 2023Q4

REPORT INFORMATION
  Report Type: Other
  Country: IT (occurrence: IT)
  Receive Date: 20231114
  Receipt Date: 20231114
  Transmission Date: 20240110
  Serious: Yes (Hospitalization)
  Sender: FDA-Public Use
  Company Number: IT-MAYNE PHARMA-2023MYN000639

PATIENT

DRUGS (2)
  1. TOLSURA [Suspect]
     Active Substance: ITRACONAZOLE
     Indication: Fungal infection
     Dosage: 200 MG, QD (EVERY 24 HOURS)
     Route: 048
     Dates: start: 20230925, end: 20231001
  2. ROSUVASTATIN [Suspect]
     Active Substance: ROSUVASTATIN
     Indication: Dyslipidaemia
     Dosage: 10 MG, QD (EVERY 24 HOUR)
     Route: 048
     Dates: start: 20200101, end: 20231001

REACTIONS (1)
  - Rhabdomyolysis [Recovered/Resolved with Sequelae]

NARRATIVE: CASE EVENT DATE: 20231001
